FAERS Safety Report 25468889 (Version 1)
Quarter: 2025Q2

REPORT INFORMATION
  Report Type: Spontaneous
  Country: US (occurrence: US)
  Receive Date: 20250623
  Receipt Date: 20250623
  Transmission Date: 20250717
  Serious: No
  Sender: SANOFI AVENTIS
  Company Number: US-SANOFI-02560608

PATIENT
  Age: 36 Year
  Sex: Male

DRUGS (3)
  1. DUPIXENT [Suspect]
     Active Substance: DUPILUMAB
     Indication: Eosinophilic oesophagitis
  2. REMICADE [Concomitant]
     Active Substance: INFLIXIMAB
     Indication: Autoimmune disorder
  3. METHOTREXATE [Concomitant]
     Active Substance: METHOTREXATE
     Indication: Autoimmune disorder

REACTIONS (4)
  - Odynophagia [Unknown]
  - Haemoptysis [Unknown]
  - Gastrooesophageal reflux disease [Unknown]
  - Oropharyngeal pain [Unknown]
